FAERS Safety Report 7812917-6 (Version None)
Quarter: 2011Q4

REPORT INFORMATION
  Report Type: 
  Country: None (occurrence: None)
  Receive Date: 20111013
  Receipt Date: 20111004
  Transmission Date: 20120403
  Serious: Yes (Hospitalization, Other)
  Sender: FDA-Public Use
  Company Number: US-US-EMD SERONO, INC.-7087430

PATIENT
  Sex: Female

DRUGS (2)
  1. REBIF [Suspect]
     Indication: PRODUCT USED FOR UNKNOWN INDICATION
     Route: 058
     Dates: start: 20090716, end: 20110601
  2. REBIF [Suspect]
     Route: 058
     Dates: start: 20110601

REACTIONS (4)
  - TREMOR [None]
  - OPTIC NEURITIS [None]
  - PAIN [None]
  - MUSCULAR WEAKNESS [None]
